FAERS Safety Report 16292200 (Version 2)
Quarter: 2019Q2

REPORT INFORMATION
  Report Type: Report from Study
  Country: FI (occurrence: FI)
  Receive Date: 20190509
  Receipt Date: 20190517
  Transmission Date: 20190711
  Serious: Yes (Death, Other)
  Sender: FDA-Public Use
  Company Number: FI-ALLERGAN-1919507US

PATIENT
  Sex: Female

DRUGS (3)
  1. LEVOMEPROMAZINE [Interacting]
     Active Substance: LEVOMEPROMAZINE
     Indication: PRODUCT USED FOR UNKNOWN INDICATION
     Route: 065
  2. CITALOPRAM HYDROBROMIDE UNK [Suspect]
     Active Substance: CITALOPRAM HYDROBROMIDE
     Indication: PRODUCT USED FOR UNKNOWN INDICATION
     Route: 065
  3. PROMAZINE [Concomitant]
     Active Substance: PROMAZINE
     Route: 065

REACTIONS (4)
  - Electrocardiogram QT prolonged [Fatal]
  - Toxicity to various agents [Fatal]
  - Completed suicide [Fatal]
  - Drug interaction [Fatal]
